FAERS Safety Report 5097002-1 (Version None)
Quarter: 2006Q3

REPORT INFORMATION
  Report Type: 
  Country: None (occurrence: None)
  Receive Date: 20060831
  Receipt Date: 20060831
  Transmission Date: 20061208
  Serious: Yes (Hospitalization, Other)
  Sender: FDA-Public Use
  Company Number: None

PATIENT
  Age: 51 Year
  Sex: Female
  Weight: 62.1428 kg

DRUGS (1)
  1. TOPAMAX [Suspect]
     Indication: MIGRAINE
     Dates: start: 20060815, end: 20060823

REACTIONS (3)
  - ANGLE CLOSURE GLAUCOMA [None]
  - DRUG INEFFECTIVE [None]
  - NO THERAPEUTIC RESPONSE [None]
